FAERS Safety Report 6770390-3 (Version None)
Quarter: 2010Q2

REPORT INFORMATION
  Report Type: 
  Country: None (occurrence: None)
  Receive Date: 20100608
  Receipt Date: 20100528
  Transmission Date: 20101027
  Serious: Yes (Death, Life-Threatening, Disabling)
  Sender: FDA-Public Use
  Company Number: WAES 1005USA04674

PATIENT
  Age: 66 Year
  Sex: Male
  Weight: 59.8748 kg

DRUGS (10)
  1. CAP VORINOSTAT UNK [Suspect]
     Indication: MANTLE CELL LYMPHOMA
     Dosage: 400 MG/PO
     Route: 048
     Dates: start: 20100510, end: 20100523
  2. INJ CLADRIBINE UNK [Suspect]
     Indication: MANTLE CELL LYMPHOMA
     Dosage: 8.5 MG/IV
     Route: 042
     Dates: start: 20100510, end: 20100514
  3. INJ RITUXIMAB UNK [Suspect]
     Indication: MANTLE CELL LYMPHOMA
     Dosage: 650 MG/IV
     Route: 042
     Dates: start: 20100512, end: 20100512
  4. INJ RITUXIMAB UNK [Suspect]
     Indication: MANTLE CELL LYMPHOMA
     Dosage: 650 MG/IV
     Route: 042
     Dates: start: 20100519, end: 20100519
  5. ADVAIR DISKUS 100/50 [Concomitant]
  6. COUMADIN [Concomitant]
  7. SPIRIVA [Concomitant]
  8. COLCHICINE [Concomitant]
  9. LEVOTHYROXINE SODIUM [Concomitant]
  10. LISINOPRIL [Concomitant]

REACTIONS (5)
  - DIARRHOEA HAEMORRHAGIC [None]
  - DYSPNOEA EXERTIONAL [None]
  - OVERDOSE [None]
  - PYREXIA [None]
  - SPUTUM DISCOLOURED [None]
